FAERS Safety Report 9832045 (Version 3)
Quarter: 2014Q1

REPORT INFORMATION
  Report Type: Spontaneous
  Country: JP (occurrence: JP)
  Receive Date: 20140121
  Receipt Date: 20140203
  Transmission Date: 20141002
  Serious: Yes (Other)
  Sender: FDA-Public Use
  Company Number: JP-PFIZER INC-2014013216

PATIENT
  Age: 25 Year
  Sex: Female

DRUGS (6)
  1. CORTRIL [Suspect]
     Indication: ADRENAL INSUFFICIENCY
     Dosage: 30 MG, 1X/DAY
     Route: 048
  2. CORTRIL [Interacting]
     Dosage: 100MG/DAY FOR 2 DAYS
     Route: 042
  3. FLORINEF [Interacting]
     Indication: ADRENAL INSUFFICIENCY
     Dosage: 0.05 MG, 1X/DAY
     Route: 048
  4. LAMICTAL [Interacting]
     Indication: EPILEPSY
     Dosage: 350 MG, 1X/DAY
     Route: 048
  5. TEGRETOL [Interacting]
     Indication: EPILEPSY
     Dosage: 300 MG, 1X/DAY
     Route: 048
  6. DEPAKENE [Interacting]
     Indication: EPILEPSY
     Dosage: 1000 MG, 1X/DAY
     Route: 048

REACTIONS (4)
  - Drug interaction [Recovering/Resolving]
  - Blood cortisol decreased [Recovering/Resolving]
  - Hyponatraemia [Recovering/Resolving]
  - Drug ineffective [Recovering/Resolving]
